FAERS Safety Report 25996630 (Version 1)
Quarter: 2025Q4

REPORT INFORMATION
  Report Type: Spontaneous
  Country: US (occurrence: US)
  Receive Date: 20251104
  Receipt Date: 20251104
  Transmission Date: 20260118
  Serious: No
  Sender: ABBVIE
  Company Number: US-ABBVIE-6527627

PATIENT
  Age: 22 Year
  Sex: Female
  Weight: 54 kg

DRUGS (1)
  1. BOTOX [Suspect]
     Active Substance: ONABOTULINUMTOXINA
     Indication: Pain in jaw
     Dosage: TIME INTERVAL: AS NECESSARY: DOSE- 30 UNITS?FREQUENCY- EVERY ONE DAY?BOTOX THERAPEUTIC
     Route: 030
     Dates: start: 20251015, end: 20251015

REACTIONS (3)
  - Muscle tightness [Unknown]
  - Temporomandibular pain and dysfunction syndrome [Unknown]
  - Oral disorder [Unknown]

NARRATIVE: CASE EVENT DATE: 20251001
